FAERS Safety Report 6957563 (Version 4)
Quarter: 2015Q4

REPORT INFORMATION
  Report Type: Spontaneous
  Country: GB (occurrence: GB)
  Receive Date: 20090401
  Receipt Date: 20151021
  Transmission Date: 20160305
  Serious: Yes (Life-Threatening)
  Sender: FDA-Public Use
  Company Number: PHHY2009GB11499

PATIENT
  Age: 50 Year
  Sex: Male

DRUGS (1)
  1. DICLOFENAC [Suspect]
     Active Substance: DICLOFENAC
     Indication: MUSCLE INJURY
     Route: 065

REACTIONS (24)
  - Disseminated intravascular coagulation [Unknown]
  - Blood thrombin [Unknown]
  - Gastrointestinal necrosis [Unknown]
  - Haematemesis [Unknown]
  - Gastric ulcer [Unknown]
  - Inflammation [Unknown]
  - Peritonitis [Unknown]
  - Sepsis [Unknown]
  - Intestinal ischaemia [Unknown]
  - Post procedural complication [Unknown]
  - Transfusion [Unknown]
  - Post procedural bile leak [Unknown]
  - Laparotomy [Unknown]
  - Blister [Unknown]
  - Necrosis ischaemic [Unknown]
  - Therapeutic embolisation [Unknown]
  - Gastric bypass [Unknown]
  - Duodenal ulcer haemorrhage [Unknown]
  - Gastrectomy [Unknown]
  - Small intestinal haemorrhage [Unknown]
  - Jejunectomy [Unknown]
  - Stoma site haemorrhage [Unknown]
  - Fibrin D dimer increased [Unknown]
  - Duodenal perforation [Unknown]
